FAERS Safety Report 15456868 (Version 3)
Quarter: 2019Q1

REPORT INFORMATION
  Report Type: Spontaneous
  Country: US (occurrence: US)
  Receive Date: 20181002
  Receipt Date: 20190110
  Transmission Date: 20190417
  Serious: Yes (Other)
  Sender: FDA-Public Use
  Company Number: US-LUNDBECK-DKLU2055024

PATIENT
  Age: 75 Year
  Sex: Female

DRUGS (4)
  1. NORTHERA [Suspect]
     Active Substance: DROXIDOPA
     Route: 048
  2. NORTHERA [Suspect]
     Active Substance: DROXIDOPA
     Indication: PARKINSON^S DISEASE
     Route: 048
     Dates: start: 20180917
  3. NORTHERA [Suspect]
     Active Substance: DROXIDOPA
     Indication: ORTHOSTATIC HYPOTENSION
     Route: 048
     Dates: start: 20180923
  4. NORTHERA [Suspect]
     Active Substance: DROXIDOPA
     Route: 048
     Dates: start: 201809

REACTIONS (11)
  - Diarrhoea [Not Recovered/Not Resolved]
  - Blood pressure increased [Unknown]
  - Agitation [Unknown]
  - Suicidal ideation [Recovered/Resolved]
  - Stress [Unknown]
  - Therapeutic response decreased [Unknown]
  - Abdominal pain [Not Recovered/Not Resolved]
  - Product dose omission [Unknown]
  - Condition aggravated [Unknown]
  - Chills [Not Recovered/Not Resolved]
  - Hypotension [Unknown]

NARRATIVE: CASE EVENT DATE: 201809
